FAERS Safety Report 25570041 (Version 2)
Quarter: 2025Q4

REPORT INFORMATION
  Report Type: Report from Study
  Country: US (occurrence: US)
  Receive Date: 20250717
  Receipt Date: 20251011
  Transmission Date: 20260117
  Serious: Yes (Other)
  Sender: ABBVIE
  Company Number: US-ABBVIE-6200598

PATIENT
  Age: 56 Year
  Sex: Female

DRUGS (1)
  1. IMBRUVICA [Suspect]
     Active Substance: IBRUTINIB
     Indication: Chronic lymphocytic leukaemia
     Route: 048
     Dates: start: 20220722

REACTIONS (9)
  - Lung induration [Unknown]
  - Nerve compression [Unknown]
  - Muscle spasms [Unknown]
  - Oxygen saturation decreased [Recovering/Resolving]
  - Headache [Unknown]
  - Dyspnoea [Unknown]
  - Fatigue [Unknown]
  - Rash erythematous [Unknown]
  - Loss of personal independence in daily activities [Unknown]

NARRATIVE: CASE EVENT DATE: 20250101
